FAERS Safety Report 24255084 (Version 1)
Quarter: 2024Q3

REPORT INFORMATION
  Report Type: Spontaneous
  Country: CN (occurrence: CN)
  Receive Date: 20240827
  Receipt Date: 20240827
  Transmission Date: 20241016
  Serious: Yes (Other)
  Sender: SANDOZ
  Company Number: CN-MLMSERVICE-20240626-PI112571-00082-1

PATIENT
  Age: 52 Year
  Sex: Male

DRUGS (6)
  1. CARBOPLATIN [Suspect]
     Active Substance: CARBOPLATIN
     Indication: Product used for unknown indication
     Dosage: 400MG INTRAVENOUS DRIP D1
     Route: 042
     Dates: start: 20220406, end: 2022
  2. PACLITAXEL [Suspect]
     Active Substance: PACLITAXEL
     Indication: Lung squamous cell carcinoma stage IV
     Dosage: 400MG INTRAVENOUS DRIP D1
     Route: 042
     Dates: start: 20220406, end: 2022
  3. PACLITAXEL [Suspect]
     Active Substance: PACLITAXEL
     Indication: Metastases to bone
  4. SINTILIMAB [Suspect]
     Active Substance: SINTILIMAB
     Indication: Lung squamous cell carcinoma stage IV
     Dosage: 200MG INTRAVENOUS DRIP D1
     Route: 042
     Dates: start: 20220406, end: 2022
  5. SINTILIMAB [Suspect]
     Active Substance: SINTILIMAB
     Indication: Metastases to bone
  6. ACLASTA [Suspect]
     Active Substance: ZOLEDRONIC ACID
     Indication: Metastases to bone
     Dosage: 4MG INTRAVENOUS DRIP D1
     Route: 042
     Dates: start: 20220406, end: 2022

REACTIONS (2)
  - Myelosuppression [Unknown]
  - Gastrointestinal disorder [Unknown]

NARRATIVE: CASE EVENT DATE: 20220501
